FAERS Safety Report 7792570 (Version 2)
Quarter: 2013Q2

REPORT INFORMATION
  Report Type: Report from Study
  Country: MX (occurrence: MX)
  Receive Date: 20110131
  Receipt Date: 20130523
  Transmission Date: 20140414
  Serious: Yes (Hospitalization, Other)
  Sender: FDA-Public Use
  Company Number: PHHY2011MX04189

PATIENT
  Age: 55 Year
  Sex: Male

DRUGS (1)
  1. RASILEZ [Suspect]
     Indication: HYPERTENSION
     Dosage: 2 DF(300MG), DAILY
     Route: 048
     Dates: start: 200901

REACTIONS (3)
  - Diabetic foot [Unknown]
  - Cataract [Not Recovered/Not Resolved]
  - Infarction [Not Recovered/Not Resolved]
